FAERS Safety Report 14088245 (Version 11)
Quarter: 2018Q3

REPORT INFORMATION
  Report Type: Report from Study
  Country: None (occurrence: AU)
  Receive Date: 20171013
  Receipt Date: 20180816
  Transmission Date: 20181010
  Serious: Yes (Hospitalization, Other)
  Sender: FDA-Public Use
  Company Number: AU-ABBVIE-17P-008-2129764-00

PATIENT
  Age: 79 Year
  Sex: Male
  Weight: 66 kg

DRUGS (21)
  1. CLOPIDOGREL [Concomitant]
     Active Substance: CLOPIDOGREL BISULFATE
     Indication: CARDIAC DISORDER
     Route: 048
     Dates: start: 20150930
  2. MOVICOL [Concomitant]
     Active Substance: POLYETHYLENE GLYCOL 3350\POTASSIUM CHLORIDE\SODIUM BICARBONATE\SODIUM CHLORIDE
     Indication: CONSTIPATION
     Route: 048
     Dates: start: 2016
  3. AMLODIPINE [Concomitant]
     Active Substance: AMLODIPINE BESYLATE
     Indication: HYPERTENSION
  4. SINEMETCR [Concomitant]
     Indication: PARKINSON^S DISEASE
     Dosage: 500/125  MG
     Route: 048
  5. DOMPERIDONE [Concomitant]
     Active Substance: DOMPERIDONE
     Indication: NAUSEA
     Route: 048
  6. COVERSYL [Concomitant]
     Active Substance: PERINDOPRIL
     Indication: CORONARY ARTERY DISEASE
     Route: 048
     Dates: start: 2017
  7. COMTAN [Concomitant]
     Active Substance: ENTACAPONE
     Indication: PARKINSON^S DISEASE
     Route: 048
  8. QUETIAPINE. [Concomitant]
     Active Substance: QUETIAPINE
     Indication: DEPRESSION
     Route: 048
  9. ATORVASTATIN [Concomitant]
     Active Substance: ATORVASTATIN
     Indication: MYOCARDIAL ISCHAEMIA
     Route: 048
     Dates: start: 20131025
  10. PANTOPRAZOLE [Concomitant]
     Active Substance: PANTOPRAZOLE
     Indication: GASTROOESOPHAGEAL REFLUX DISEASE
     Route: 048
     Dates: start: 20150930
  11. CELECOXIB. [Concomitant]
     Active Substance: CELECOXIB
     Indication: INFLAMMATION
  12. DUODOPA [Suspect]
     Active Substance: CARBIDOPA\LEVODOPA
     Indication: PARKINSON^S DISEASE
     Dosage: 9.0 ML MORNING DOSE, 6.0 ML CONTINUOUS
     Route: 050
     Dates: start: 20170330, end: 20170802
  13. DURIDE [Concomitant]
     Indication: CHEST PAIN
     Route: 048
  14. CEPHALEXIN. [Concomitant]
     Active Substance: CEPHALEXIN
     Indication: BACTERIAL INFECTION
     Route: 048
     Dates: start: 20170407, end: 20170417
  15. ROTIGOTINE [Concomitant]
     Active Substance: ROTIGOTINE
     Indication: PARKINSON^S DISEASE
     Route: 062
     Dates: start: 201411
  16. CELECOXIB. [Concomitant]
     Active Substance: CELECOXIB
     Indication: PAIN
     Route: 048
     Dates: start: 2016
  17. DUODOPA [Suspect]
     Active Substance: CARBIDOPA\LEVODOPA
     Dosage: 9.0 ML MORNING DOSE, 6.0 ML CONTINUOUS
     Route: 050
     Dates: start: 20170802
  18. AMLODIPINE [Concomitant]
     Active Substance: AMLODIPINE BESYLATE
     Indication: ANGINA PECTORIS
     Dosage: NOCTE
     Route: 048
     Dates: start: 20170328, end: 2017
  19. ASPIRIN. [Concomitant]
     Active Substance: ASPIRIN
     Indication: MYOCARDIAL ISCHAEMIA
     Route: 048
     Dates: start: 2016
  20. ESCITALOPRAM [Concomitant]
     Active Substance: ESCITALOPRAM OXALATE
     Indication: DEPRESSION
     Route: 048
     Dates: start: 20131025
  21. COPLAVIX [Concomitant]
     Active Substance: ASPIRIN\CLOPIDOGREL BISULFATE
     Indication: THROMBOSIS PROPHYLAXIS
     Dosage: 75/100 MG
     Route: 048
     Dates: start: 20160622

REACTIONS (7)
  - Loss of consciousness [Recovered/Resolved]
  - Loss of consciousness [Recovered/Resolved]
  - Device occlusion [Recovered/Resolved]
  - Loss of consciousness [Recovered/Resolved]
  - Device occlusion [Recovered/Resolved]
  - Stoma site discharge [Recovered/Resolved]
  - Stoma site erythema [Not Recovered/Not Resolved]

NARRATIVE: CASE EVENT DATE: 201704
